FAERS Safety Report 17580560 (Version 2)
Quarter: 2020Q1

REPORT INFORMATION
  Report Type: Spontaneous
  Country: US (occurrence: US)
  Receive Date: 20200325
  Receipt Date: 20200331
  Transmission Date: 20200409
  Serious: Yes (Other)
  Sender: FDA-Public Use
  Company Number: US-OTSUKA-2020_007864

PATIENT
  Sex: Female

DRUGS (1)
  1. REXULTI [Suspect]
     Active Substance: BREXPIPRAZOLE
     Indication: DEPRESSION
     Dosage: 1 MG, UNK
     Route: 065

REACTIONS (6)
  - Diabetes mellitus [Unknown]
  - Atrial fibrillation [Unknown]
  - Inability to afford medication [Unknown]
  - Wrong technique in product usage process [Unknown]
  - Antiphospholipid syndrome [Unknown]
  - Depressed mood [Unknown]
